FAERS Safety Report 24425005 (Version 1)
Quarter: 2024Q4

REPORT INFORMATION
  Report Type: Spontaneous
  Country: US (occurrence: US)
  Receive Date: 20241010
  Receipt Date: 20241010
  Transmission Date: 20250115
  Serious: No
  Sender: SUNOVION
  Company Number: US-SMPA-2024SPA003266AA

PATIENT

DRUGS (1)
  1. ORGOVYX [Suspect]
     Active Substance: RELUGOLIX
     Indication: Prostate cancer
     Dosage: 120/TAKE ONE TABLET BY MOUTH ONCE DAILY AROUND THE SAME TIME
     Route: 048

REACTIONS (8)
  - Brain fog [Unknown]
  - Crying [Unknown]
  - Toothache [Unknown]
  - Pain in jaw [Unknown]
  - Arthralgia [Unknown]
  - Back pain [Unknown]
  - Neck pain [Unknown]
  - Pain in extremity [Unknown]
